FAERS Safety Report 14477191 (Version 1)
Quarter: 2018Q1

REPORT INFORMATION
  Report Type: Report from Study
  Country: US (occurrence: US)
  Receive Date: 20180201
  Receipt Date: 20180201
  Transmission Date: 20180509
  Serious: No
  Sender: FDA-Public Use
  Company Number: US-EXELIXIS-CABO-17010020

PATIENT
  Sex: Male

DRUGS (20)
  1. CARAFATE [Concomitant]
     Active Substance: SUCRALFATE
  2. CLONIDINE. [Concomitant]
     Active Substance: CLONIDINE
  3. MAGNESIUM OXIDE. [Concomitant]
     Active Substance: MAGNESIUM OXIDE
  4. CARVEDILOL. [Concomitant]
     Active Substance: CARVEDILOL
  5. CYPROHEPTADINE HCL [Concomitant]
     Active Substance: CYPROHEPTADINE HYDROCHLORIDE
  6. HYDRALAZINE HCL [Concomitant]
     Active Substance: HYDRALAZINE HYDROCHLORIDE
  7. CABOMETYX [Suspect]
     Active Substance: CABOZANTINIB S-MALATE
     Indication: RENAL CANCER
     Dosage: 40 MG, QD
     Route: 048
     Dates: start: 20151214
  8. ALLOPURINOL. [Concomitant]
     Active Substance: ALLOPURINOL
  9. SUTENT [Concomitant]
     Active Substance: SUNITINIB MALATE
  10. VITAMIN B12 [Concomitant]
     Active Substance: CYANOCOBALAMIN
  11. GABAPENTIN. [Concomitant]
     Active Substance: GABAPENTIN
  12. LORAZEPAM. [Concomitant]
     Active Substance: LORAZEPAM
  13. MAGNESIUM [Concomitant]
     Active Substance: MAGNESIUM
  14. AMBIEN [Concomitant]
     Active Substance: ZOLPIDEM TARTRATE
  15. COMPAZINE [Concomitant]
     Active Substance: PROCHLORPERAZINE MALEATE
  16. DOXAZOSIN MESYLATE. [Concomitant]
     Active Substance: DOXAZOSIN MESYLATE
  17. STOOL SOFTENER (DOCUSATE) [Concomitant]
     Active Substance: DOCUSATE
  18. TRIAMCINOLONE ACETONIDE. [Concomitant]
     Active Substance: TRIAMCINOLONE ACETONIDE
  19. COLACE [Concomitant]
     Active Substance: DOCUSATE SODIUM
  20. HYDROMORPHONE HCL [Concomitant]
     Active Substance: HYDROMORPHONE HYDROCHLORIDE

REACTIONS (5)
  - Diarrhoea [Not Recovered/Not Resolved]
  - Muscle spasms [Not Recovered/Not Resolved]
  - Fatigue [Not Recovered/Not Resolved]
  - Nausea [Not Recovered/Not Resolved]
  - Dry throat [Unknown]
